FAERS Safety Report 9903559 (Version 1)
Quarter: 2014Q1

REPORT INFORMATION
  Report Type: Spontaneous
  Country: HU (occurrence: HU)
  Receive Date: 20140217
  Receipt Date: 20140217
  Transmission Date: 20141002
  Serious: Yes (Hospitalization)
  Sender: FDA-Public Use
  Company Number: US-ASTRAZENECA-2014SE10492

PATIENT
  Age: 2 Month
  Sex: Male

DRUGS (2)
  1. SYNAGIS [Suspect]
     Indication: ANTIVIRAL PROPHYLAXIS
     Dosage: SYNAGIS INJECTION WAS GIVEN BASED ON BODY WEIGHT
     Route: 030
     Dates: end: 20140103
  2. SYNAGIS [Suspect]
     Indication: ANTIVIRAL PROPHYLAXIS
     Dosage: SYNAGIS INJECTION WAS GIVEN BASED ON BODY WEIGHT
     Route: 030

REACTIONS (2)
  - Cough [Unknown]
  - Rhinorrhoea [Unknown]
